FAERS Safety Report 6027201-3 (Version None)
Quarter: 2009Q1

REPORT INFORMATION
  Report Type: 
  Country: None (occurrence: None)
  Receive Date: 20090105
  Receipt Date: 20081211
  Transmission Date: 20090719
  Serious: Yes (Hospitalization)
  Sender: FDA-Public Use
  Company Number: ES-PFIZER INC-2008153799

PATIENT

DRUGS (1)
  1. SOMAVERT [Suspect]
     Indication: ACROMEGALY
     Dosage: UNK
     Route: 058
     Dates: start: 20080101

REACTIONS (4)
  - ANAEMIA [None]
  - ANAL FISTULA [None]
  - LEUKOPENIA [None]
  - THROMBOCYTOPENIA [None]
